FAERS Safety Report 9406951 (Version 1)
Quarter: 2013Q3

REPORT INFORMATION
  Report Type: Spontaneous
  Country: US (occurrence: US)
  Receive Date: 20130718
  Receipt Date: 20130718
  Transmission Date: 20140515
  Serious: No
  Sender: FDA-Public Use
  Company Number: US-PFIZER INC-2013210239

PATIENT
  Age: 84 Year
  Sex: Male
  Weight: 81.63 kg

DRUGS (1)
  1. GABAPENTIN [Suspect]
     Indication: BURNING SENSATION
     Dosage: 300 MG, 3X/DAY
     Dates: start: 201306

REACTIONS (2)
  - Rash erythematous [Not Recovered/Not Resolved]
  - Pruritus [Not Recovered/Not Resolved]
